FAERS Safety Report 9331257 (Version 1)
Quarter: 2013Q2

REPORT INFORMATION
  Report Type: Report from Study
  Country: CO (occurrence: CO)
  Receive Date: 20130605
  Receipt Date: 20130605
  Transmission Date: 20140414
  Serious: Yes (Other)
  Sender: FDA-Public Use
  Company Number: CO-SANOFI-AVENTIS-2013SA055948

PATIENT
  Age: 65 Year
  Sex: Female

DRUGS (6)
  1. INSULIN GLULISINE [Suspect]
     Indication: TYPE 2 DIABETES MELLITUS
     Route: 058
     Dates: start: 201212, end: 201212
  2. METFORMIN [Concomitant]
     Indication: DIABETES MELLITUS
     Route: 048
  3. OMEPRAZOLE [Concomitant]
     Route: 048
  4. LOSARTAN [Concomitant]
     Indication: HYPERTENSION
     Route: 048
  5. METOPROLOL [Concomitant]
     Route: 048
  6. ACETYLSALICYLIC ACID [Concomitant]
     Route: 048

REACTIONS (2)
  - Respiratory distress [Recovered/Resolved]
  - Tachycardia [Recovered/Resolved]
